FAERS Safety Report 20708616 (Version 1)
Quarter: 2022Q2

REPORT INFORMATION
  Report Type: Spontaneous
  Country: CN (occurrence: None)
  Receive Date: 20220414
  Receipt Date: 20220414
  Transmission Date: 20220721
  Serious: Yes (Hospitalization)
  Sender: FDA-Public Use
  Company Number: CN-ROCHE-3067132

PATIENT
  Age: 46 Year
  Sex: Female

DRUGS (6)
  1. CAPECITABINE [Suspect]
     Active Substance: CAPECITABINE
     Indication: Breast cancer metastatic
     Route: 048
     Dates: start: 20220216, end: 20220323
  2. CAMRELIZUMAB [Suspect]
     Active Substance: CAMRELIZUMAB
     Indication: Breast cancer metastatic
     Route: 041
     Dates: start: 20220216, end: 20220216
  3. APATINIB [Suspect]
     Active Substance: APATINIB
     Indication: Breast cancer metastatic
     Dosage: DF=TABLET
     Route: 048
     Dates: start: 20220216, end: 20220323
  4. MAGNESIUM ISOGLYCYRRHIZINATE [Concomitant]
     Active Substance: MAGNESIUM ISOGLYCYRRHIZINATE
     Dates: start: 20220316, end: 20220328
  5. URSODIOL [Concomitant]
     Active Substance: URSODIOL
     Dates: start: 20220321, end: 20220328
  6. METHYLPREDNISOLONE [Concomitant]
     Active Substance: METHYLPREDNISOLONE
     Dates: start: 20220324, end: 20220328

REACTIONS (1)
  - Transaminases increased [Recovered/Resolved]

NARRATIVE: CASE EVENT DATE: 20220323
